FAERS Safety Report 7201077-0 (Version None)
Quarter: 2010Q4

REPORT INFORMATION
  Report Type: 
  Country: None (occurrence: None)
  Receive Date: 20101214
  Receipt Date: 20101201
  Transmission Date: 20110411
  Serious: No
  Sender: FDA-Public Use
  Company Number: B0686838A

PATIENT
  Age: 48 Year
  Sex: Female

DRUGS (6)
  1. LAMOTRIGINE [Suspect]
     Indication: ILL-DEFINED DISORDER
  2. RISPERIDONE [Suspect]
     Indication: ILL-DEFINED DISORDER
  3. TOPIRAMATE [Suspect]
     Indication: DRUG THERAPY
     Dosage: 400 MG / PER DAY / ORAL
     Route: 048
  4. LOFEPRAMINE (FORMULATION UNKNOWN) (GENERIC) (LOFEPRAMINE) [Suspect]
     Indication: ILL-DEFINED DISORDER
  5. ANTIDEPRESSANT (FORMULATION UNKNOWN) (ANTIDEPRESSANT) [Suspect]
     Indication: ILL-DEFINED DISORDER
  6. UNKNOWN (FORMULATION UNKNOWN) (UNKNOWN [Suspect]
     Indication: ILL-DEFINED DISORDER

REACTIONS (4)
  - GAIT DISTURBANCE [None]
  - PARAESTHESIA [None]
  - PARKINSONISM [None]
  - WEIGHT DECREASED [None]
